FAERS Safety Report 18726250 (Version 2)
Quarter: 2021Q1

REPORT INFORMATION
  Report Type: Spontaneous
  Country: GB (occurrence: GB)
  Receive Date: 20210111
  Receipt Date: 20210117
  Transmission Date: 20210419
  Serious: Yes (Disabling, Other)
  Sender: FDA-Public Use
  Company Number: GB-TEVA-2021-GB-1866281

PATIENT
  Age: 26 Year
  Sex: Male
  Weight: 70 kg

DRUGS (1)
  1. BECLOMETASONE [Suspect]
     Active Substance: BECLOMETHASONE DIPROPIONATE
     Indication: SEASONAL ALLERGY
     Dosage: 1 DOSAGE FORMS DAILY;
     Route: 045
     Dates: start: 20180613, end: 20180620

REACTIONS (4)
  - Vision blurred [Not Recovered/Not Resolved]
  - Chorioretinopathy [Not Recovered/Not Resolved]
  - Retinal disorder [Not Recovered/Not Resolved]
  - Visual impairment [Not Recovered/Not Resolved]

NARRATIVE: CASE EVENT DATE: 20180622
